FAERS Safety Report 5900277-7 (Version None)
Quarter: 2008Q3

REPORT INFORMATION
  Report Type: 
  Country: None (occurrence: None)
  Receive Date: 20080926
  Receipt Date: 20080919
  Transmission Date: 20090109
  Serious: Yes (Other)
  Sender: FDA-Public Use
  Company Number: PHHY2008DE21980

PATIENT

DRUGS (2)
  1. ACLASTA [Suspect]
     Dosage: 5 MG, ONCE/SINGLE
     Dates: start: 20080111
  2. ARAVA [Interacting]
     Indication: RHEUMATOID ARTHRITIS

REACTIONS (3)
  - BLOOD CREATININE INCREASED [None]
  - DRUG INTERACTION [None]
  - RENAL FAILURE [None]
